FAERS Safety Report 6854184-6 (Version None)
Quarter: 2010Q3

REPORT INFORMATION
  Report Type: 
  Country: None (occurrence: None)
  Receive Date: 20100717
  Receipt Date: 20071221
  Transmission Date: 20110219
  Serious: No
  Sender: FDA-Public Use
  Company Number: US-PFIZER INC-2008001095

PATIENT
  Sex: Female
  Weight: 86.2 kg

DRUGS (12)
  1. CHANTIX [Suspect]
     Indication: SMOKING CESSATION THERAPY
     Dates: start: 20071101, end: 20071201
  2. GABAPENTIN [Concomitant]
  3. FERROUS SULFATE [Concomitant]
  4. VALSARTAN [Concomitant]
  5. ALL OTHER THERAPEUTIC PRODUCTS [Concomitant]
  6. VYTORIN [Concomitant]
  7. ACETYLSALICYLIC ACID [Concomitant]
  8. METFORMIN HYDROCHLORIDE [Concomitant]
  9. ACTOS [Concomitant]
  10. PIROXICAM [Concomitant]
  11. FENOFIBRATE [Concomitant]
  12. PLAVIX [Concomitant]

REACTIONS (2)
  - NAUSEA [None]
  - VOMITING [None]
